FAERS Safety Report 14275926 (Version 2)
Quarter: 2017Q4

REPORT INFORMATION
  Report Type: Spontaneous
  Country: US (occurrence: US)
  Receive Date: 20171212
  Receipt Date: 20171221
  Transmission Date: 20180321
  Serious: Yes (Hospitalization)
  Sender: FDA-Public Use
  Company Number: US-ORPHAN EUROPE-2037046

PATIENT
  Age: 38 Year
  Sex: Male

DRUGS (1)
  1. CYSTADANE [Suspect]
     Active Substance: BETAINE
     Indication: HOMOCYSTINURIA
     Route: 048

REACTIONS (5)
  - Dyspnoea [Not Recovered/Not Resolved]
  - Asthenia [Not Recovered/Not Resolved]
  - Cardiac failure [Not Recovered/Not Resolved]
  - Atrial fibrillation [Not Recovered/Not Resolved]
  - Balance disorder [Unknown]

NARRATIVE: CASE EVENT DATE: 20171120
